FAERS Safety Report 17142202 (Version 1)
Quarter: 2019Q4

REPORT INFORMATION
  Report Type: Spontaneous
  Country: MY (occurrence: MY)
  Receive Date: 20191211
  Receipt Date: 20191211
  Transmission Date: 20200122
  Serious: Yes (Other)
  Sender: FDA-Public Use
  Company Number: MY-SHIRE-MY201942159

PATIENT

DRUGS (1)
  1. ELAPRASE [Suspect]
     Active Substance: IDURSULFASE
     Indication: MUCOPOLYSACCHARIDOSIS II
     Dosage: UNK, 1X/WEEK
     Route: 042

REACTIONS (12)
  - Peripheral coldness [Recovered/Resolved]
  - Restlessness [Recovered/Resolved]
  - Body temperature increased [Recovered/Resolved]
  - Respiratory rate increased [Recovered/Resolved]
  - Irritability [Recovered/Resolved]
  - Pulse volume decreased [Recovered/Resolved]
  - Chills [Recovered/Resolved]
  - Urticaria [Unknown]
  - Pallor [Recovered/Resolved]
  - Livedo reticularis [Recovered/Resolved]
  - Flushing [Recovered/Resolved]
  - Irregular breathing [Recovered/Resolved]
